FAERS Safety Report 7529202-2 (Version None)
Quarter: 2011Q2

REPORT INFORMATION
  Report Type: 
  Country: None (occurrence: None)
  Receive Date: 20110520
  Receipt Date: 20110307
  Transmission Date: 20111010
  Serious: No
  Sender: FDA-Public Use
  Company Number: 028890

PATIENT
  Sex: Female
  Weight: 47.6 kg

DRUGS (10)
  1. EFFEXOR XR [Concomitant]
  2. ZYPREXA [Concomitant]
  3. LACOSAMIDE [Suspect]
     Indication: CONVULSION
     Dosage: (50 MG BID ORAL)
     Route: 048
     Dates: start: 20110119, end: 20110305
  4. MULTI-VITAMINS [Concomitant]
  5. VITAMIN B NOS [Concomitant]
  6. ESTRADIOL [Concomitant]
  7. PHENOBARBITAL TAB [Concomitant]
  8. SYNTHROID [Concomitant]
  9. LAMICTAL [Concomitant]
     Dates: end: 20110217
  10. DILANTIN [Concomitant]

REACTIONS (2)
  - RASH GENERALISED [None]
  - PARAESTHESIA [None]
